FAERS Safety Report 11459952 (Version 1)
Quarter: 2015Q3

REPORT INFORMATION
  Report Type: Spontaneous
  Country: US (occurrence: US)
  Receive Date: 20150904
  Receipt Date: 20150904
  Transmission Date: 20151125
  Serious: No
  Sender: FDA-Public Use
  Company Number: US-BAYER-2015-414143

PATIENT
  Age: 78 Year
  Sex: Male

DRUGS (1)
  1. NEXAVAR [Suspect]
     Active Substance: SORAFENIB
     Indication: HEPATIC CANCER METASTATIC
     Dosage: UNK
     Route: 048
     Dates: start: 201507

REACTIONS (2)
  - Pain [None]
  - Nausea [None]
